FAERS Safety Report 23022075 (Version 1)
Quarter: 2023Q4

REPORT INFORMATION
  Report Type: Spontaneous
  Country: US (occurrence: US)
  Receive Date: 20231003
  Receipt Date: 20231003
  Transmission Date: 20240109
  Serious: Yes (Hospitalization, Other)
  Sender: FDA-Public Use
  Company Number: US-SAMSUNG BIOEPIS-SB-2023-25343

PATIENT
  Age: 20 Year
  Sex: Male

DRUGS (5)
  1. INFLIXIMAB [Suspect]
     Active Substance: INFLIXIMAB
     Indication: Immune-mediated enterocolitis
     Route: 065
  2. VEDOLIZUMAB [Suspect]
     Active Substance: VEDOLIZUMAB
     Indication: Immune-mediated enterocolitis
     Dosage: AT WEEKS 0, TWO, AND SIX,
     Route: 042
  3. VEDOLIZUMAB [Suspect]
     Active Substance: VEDOLIZUMAB
     Dosage: ASSESSED DOSES
     Route: 042
  4. PEMBROLIZUMAB [Suspect]
     Active Substance: PEMBROLIZUMAB
     Indication: Glioblastoma multiforme
     Dosage: UNKNOWN
     Route: 065
  5. NIVOLUMAB [Suspect]
     Active Substance: NIVOLUMAB
     Indication: Glioblastoma multiforme
     Dosage: UNKNOWN
     Route: 065

REACTIONS (16)
  - Immune-mediated enterocolitis [Recovered/Resolved]
  - Hypophagia [Recovering/Resolving]
  - Hypokalaemia [Unknown]
  - Clostridium difficile infection [Recovered/Resolved]
  - Malnutrition [Unknown]
  - Megacolon [Unknown]
  - Acute kidney injury [Unknown]
  - Small intestinal obstruction [Unknown]
  - Post procedural inflammation [Unknown]
  - Hyponatraemia [Unknown]
  - Lymphoid hyperplasia of intestine [Unknown]
  - Adenovirus infection [Unknown]
  - Drug specific antibody present [Unknown]
  - Drug level decreased [Unknown]
  - Drug ineffective for unapproved indication [Unknown]
  - Off label use [Unknown]
